FAERS Safety Report 13574314 (Version 5)
Quarter: 2017Q3

REPORT INFORMATION
  Report Type: Spontaneous
  Country: US (occurrence: US)
  Receive Date: 20170523
  Receipt Date: 20170914
  Transmission Date: 20171127
  Serious: Yes (Other)
  Sender: FDA-Public Use
  Company Number: PHEH2017US015471

PATIENT
  Sex: Female
  Weight: 52.61 kg

DRUGS (1)
  1. ZOFRAN [Suspect]
     Active Substance: ONDANSETRON HYDROCHLORIDE
     Indication: VOMITING IN PREGNANCY
     Dosage: 4 MG, UNK
     Route: 048
     Dates: start: 19951201, end: 199601

REACTIONS (14)
  - Skin papilloma [Unknown]
  - Migraine [Unknown]
  - Upper respiratory tract infection [Unknown]
  - Pneumonia [Unknown]
  - Osteoarthritis [Unknown]
  - Emotional distress [Unknown]
  - Injury [Unknown]
  - Hypothyroidism [Unknown]
  - Fibrocystic breast disease [Unknown]
  - Maternal exposure during pregnancy [Unknown]
  - Peripheral swelling [Unknown]
  - Headache [Unknown]
  - Product use in unapproved indication [Unknown]
  - Onychomycosis [Unknown]
